FAERS Safety Report 23369238 (Version 2)
Quarter: 2024Q1

REPORT INFORMATION
  Report Type: Spontaneous
  Country: US (occurrence: US)
  Receive Date: 20240105
  Receipt Date: 20240325
  Transmission Date: 20240409
  Serious: No
  Sender: FDA-Public Use
  Company Number: US-BRISTOL-MYERS SQUIBB COMPANY-2024-002871

PATIENT
  Age: 86 Year
  Sex: Female

DRUGS (2)
  1. SPRYCEL [Suspect]
     Active Substance: DASATINIB
     Indication: Chronic myeloid leukaemia
     Dosage: FREQUENCY: ONCE DAILY
     Route: 048
  2. SPRYCEL [Suspect]
     Active Substance: DASATINIB
     Route: 048

REACTIONS (3)
  - Full blood count abnormal [Not Recovered/Not Resolved]
  - Headache [Unknown]
  - Rash [Unknown]

NARRATIVE: CASE EVENT DATE: 20240313
